FAERS Safety Report 7734633-1 (Version None)
Quarter: 2011Q3

REPORT INFORMATION
  Report Type: 
  Country: None (occurrence: None)
  Receive Date: 20110907
  Receipt Date: 20110902
  Transmission Date: 20111222
  Serious: Yes (Hospitalization)
  Sender: FDA-Public Use
  Company Number: DE-MERCK-1109DEU00011

PATIENT
  Age: 64 Year
  Sex: Male

DRUGS (2)
  1. TRUSOPT [Suspect]
     Indication: NORMAL TENSION GLAUCOMA
     Route: 047
     Dates: start: 20110401
  2. TRAVOPROST [Concomitant]
     Route: 047

REACTIONS (2)
  - EYE IRRITATION [None]
  - INTRAOCULAR PRESSURE INCREASED [None]
